FAERS Safety Report 4430000-7 (Version None)
Quarter: 2004Q3

REPORT INFORMATION
  Report Type: 
  Country: None (occurrence: None)
  Receive Date: 20040817
  Receipt Date: 20040804
  Transmission Date: 20050211
  Serious: Yes (Other)
  Sender: FDA-Public Use
  Company Number: HQWYE064206AUG04

PATIENT
  Age: 34 Year
  Sex: Female

DRUGS (1)
  1. RAPAMUNE [Suspect]
     Indication: PROPHYLAXIS AGAINST TRANSPLANT REJECTION
     Dates: start: 20020802, end: 20040626

REACTIONS (3)
  - BLOOD CREATININE INCREASED [None]
  - GRAFT LOSS [None]
  - HAEMODIALYSIS [None]
